FAERS Safety Report 13353525 (Version 1)
Quarter: 2017Q1

REPORT INFORMATION
  Report Type: Spontaneous
  Country: FR (occurrence: FR)
  Receive Date: 20170321
  Receipt Date: 20170321
  Transmission Date: 20170429
  Serious: Yes (Hospitalization, Other)
  Sender: FDA-Public Use
  Company Number: FR-ZYDUS-014299

PATIENT
  Age: 53 Year
  Sex: Male

DRUGS (1)
  1. METFORMIN [Suspect]
     Active Substance: METFORMIN HYDROCHLORIDE
     Indication: TYPE 2 DIABETES MELLITUS
     Route: 065

REACTIONS (14)
  - Lactic acidosis [Unknown]
  - Tachycardia [Unknown]
  - Crepitations [Unknown]
  - Abdominal pain [Recovered/Resolved]
  - Blood pressure decreased [Unknown]
  - Leukocytosis [Unknown]
  - Acute kidney injury [Recovering/Resolving]
  - Shock [Unknown]
  - Blood creatinine increased [Recovering/Resolving]
  - Anion gap increased [Unknown]
  - Hyperthermia [Unknown]
  - Blood bicarbonate [Recovered/Resolved]
  - Gastroenteritis [Unknown]
  - Vomiting [Recovered/Resolved]
